FAERS Safety Report 24960543 (Version 1)
Quarter: 2025Q1

REPORT INFORMATION
  Report Type: Spontaneous
  Country: EG (occurrence: EG)
  Receive Date: 20250212
  Receipt Date: 20250212
  Transmission Date: 20250409
  Serious: Yes (Hospitalization)
  Sender: ELI LILLY AND COMPANY
  Company Number: EG-ELI_LILLY_AND_COMPANY-EG202502002095

PATIENT
  Age: 59 Year
  Sex: Male

DRUGS (9)
  1. HUMULIN R [Suspect]
     Active Substance: INSULIN HUMAN
     Indication: Diabetes mellitus
     Route: 058
     Dates: start: 2009
  2. HUMULIN R [Suspect]
     Active Substance: INSULIN HUMAN
     Route: 058
  3. HUMULIN R [Suspect]
     Active Substance: INSULIN HUMAN
     Dosage: 13 INTERNATIONAL UNIT, DAILY
     Route: 058
  4. CILOSTAZOL [Suspect]
     Active Substance: CILOSTAZOL
     Indication: Product used for unknown indication
     Route: 065
  5. KANSARTAN PLUS [Concomitant]
     Indication: Hypertension
  6. FELODIPINE\METOPROLOL SUCCINATE [Concomitant]
     Active Substance: FELODIPINE\METOPROLOL SUCCINATE
     Indication: Hypertension
  7. FENOFIBRATE [Concomitant]
     Active Substance: FENOFIBRATE
     Indication: Product used for unknown indication
  8. ASPIRIN [Concomitant]
     Active Substance: ASPIRIN
     Indication: Product used for unknown indication
  9. LANTUS [Concomitant]
     Active Substance: INSULIN GLARGINE
     Indication: Product used for unknown indication

REACTIONS (13)
  - Ankle fracture [Recovered/Resolved with Sequelae]
  - Tibia fracture [Recovered/Resolved with Sequelae]
  - Foot fracture [Recovered/Resolved with Sequelae]
  - Fibula fracture [Recovered/Resolved with Sequelae]
  - Tachycardia [Recovered/Resolved]
  - Hyperglycaemia [Recovered/Resolved]
  - Headache [Recovered/Resolved]
  - Pyrexia [Recovered/Resolved]
  - Rhinorrhoea [Recovered/Resolved]
  - Haemoglobin decreased [Unknown]
  - Blood cholesterol increased [Unknown]
  - Dyspepsia [Unknown]
  - Hyperchlorhydria [Unknown]

NARRATIVE: CASE EVENT DATE: 20230719
